FAERS Safety Report 6564545-0 (Version None)
Quarter: 2010Q1

REPORT INFORMATION
  Report Type: 
  Country: None (occurrence: None)
  Receive Date: 20100201
  Receipt Date: 20100118
  Transmission Date: 20100710
  Serious: Yes (Hospitalization, Other)
  Sender: FDA-Public Use
  Company Number: PHHY2009JP15342

PATIENT
  Age: 65 Year
  Sex: Male
  Weight: 52 kg

DRUGS (7)
  1. SANDIMMUNE [Suspect]
     Indication: CORD BLOOD TRANSPLANT THERAPY
     Dosage: 3 ML DAILY
     Route: 042
     Dates: start: 20070527, end: 20070604
  2. SANDIMMUNE [Suspect]
     Dosage: 2 ML DAILY
     Route: 042
     Dates: start: 20070605, end: 20070607
  3. SANDIMMUNE [Suspect]
     Dosage: 2.5 ML DAILY
     Route: 042
     Dates: start: 20070608, end: 20070611
  4. SANDIMMUNE [Suspect]
     Dosage: 3 ML DAILY
     Route: 042
     Dates: start: 20070612, end: 20070614
  5. SANDIMMUNE [Suspect]
     Dosage: 2.5 ML DAILY
     Route: 042
     Dates: start: 20070615, end: 20070619
  6. SANDIMMUNE [Suspect]
     Dosage: 2.4 ML DAILY
     Route: 042
     Dates: start: 20070620, end: 20070622
  7. VANCOMYCIN [Suspect]

REACTIONS (9)
  - DEPRESSED LEVEL OF CONSCIOUSNESS [None]
  - DIARRHOEA [None]
  - DYSPHAGIA [None]
  - EYE MOVEMENT DISORDER [None]
  - GASTROSTOMY TUBE INSERTION [None]
  - PNEUMONIA ASPIRATION [None]
  - PSEUDOMEMBRANOUS COLITIS [None]
  - PYREXIA [None]
  - TOXIC ENCEPHALOPATHY [None]
